FAERS Safety Report 5913018-4 (Version None)
Quarter: 2008Q4

REPORT INFORMATION
  Report Type: 
  Country: None (occurrence: None)
  Receive Date: 20081008
  Receipt Date: 20080926
  Transmission Date: 20090506
  Serious: Yes (Other)
  Sender: FDA-Public Use
  Company Number: GB-PFIZER INC-2008082379

PATIENT
  Age: 36 Year
  Sex: Female
  Weight: 72 kg

DRUGS (2)
  1. CHANTIX [Suspect]
     Indication: SMOKING CESSATION THERAPY
     Route: 048
     Dates: start: 20071102, end: 20080118
  2. TRAMADOL HCL [Concomitant]
     Route: 048
     Dates: start: 20070501, end: 20080701

REACTIONS (2)
  - DEPRESSION [None]
  - SUICIDAL IDEATION [None]
